FAERS Safety Report 5504679-2 (Version None)
Quarter: 2007Q4

REPORT INFORMATION
  Report Type: 
  Country: None (occurrence: None)
  Receive Date: 20071031
  Receipt Date: 20071018
  Transmission Date: 20080405
  Serious: Yes (Hospitalization)
  Sender: FDA-Public Use
  Company Number: 2007JP003924

PATIENT
  Age: 36 Year
  Sex: Female
  Weight: 70 kg

DRUGS (17)
  1. PROGRAF [Suspect]
     Indication: MYASTHENIA GRAVIS
     Dosage: OTHER; 4 MG, UID/QD, OTHER; OTHER
     Route: 050
     Dates: start: 20060316, end: 20070403
  2. PROGRAF [Suspect]
     Indication: MYASTHENIA GRAVIS
     Dosage: OTHER; 4 MG, UID/QD, OTHER; OTHER
     Route: 050
     Dates: start: 20070404, end: 20070717
  3. SWORD(PRULIFLOXACIN) PER ORAL NOS [Suspect]
     Indication: CYSTITIS
     Dosage: 200 MG, BID, OTHER
     Route: 050
     Dates: start: 20070709, end: 20070713
  4. LANSOPRAZOLE [Concomitant]
  5. ALFARON (ALFACALCIDOL) [Concomitant]
  6. PREDNISONE [Concomitant]
  7. NAUZELIN (DOMPERIDONE) [Concomitant]
  8. BIOFERMIN (STREPTOCOCCUS FAECALIS, LACTOBACILLUS ACIOPHILUS, BACILLUS [Concomitant]
  9. NEUROVITAN (PYRIDOXINE HYDROCHLORIDE, CYANOCOBALAMIN, OCTOTIAMINE, RIB [Concomitant]
  10. GASCON [Concomitant]
  11. MYTELASE [Concomitant]
  12. ELENTAL (VITAMINS NOS, MINERALS NOS) [Concomitant]
  13. ASPARA-CA (ASPARTATE CALCIUM) [Concomitant]
  14. ALLOID G (SODIUM ALGINATE) [Concomitant]
  15. NIPOLAZIN (MEQUITAZINE) [Concomitant]
  16. ALESION (EPINASTINE HYDROCHLORIDE) [Concomitant]
  17. ATARAX [Concomitant]

REACTIONS (7)
  - CONVULSION [None]
  - DRUG INTERACTION [None]
  - GRAND MAL CONVULSION [None]
  - IMMUNOSUPPRESSANT DRUG LEVEL INCREASED [None]
  - LOSS OF CONSCIOUSNESS [None]
  - MALAISE [None]
  - MUSCLE RIGIDITY [None]
